FAERS Safety Report 12995146 (Version 2)
Quarter: 2017Q1

REPORT INFORMATION
  Report Type: Spontaneous
  Country: JP (occurrence: JP)
  Receive Date: 20161202
  Receipt Date: 20170118
  Transmission Date: 20170428
  Serious: Yes (Hospitalization)
  Sender: FDA-Public Use
  Company Number: JP-PFIZER INC-2016552104

PATIENT
  Age: 78 Year
  Sex: Female
  Weight: 51 kg

DRUGS (6)
  1. TOSPERAL [Concomitant]
     Dosage: UNK
  2. AZULFIDINE [Concomitant]
     Active Substance: SULFASALAZINE
     Dosage: UNK
  3. BETAHISTINE [Concomitant]
     Active Substance: BETAHISTINE
     Dosage: UNK
  4. LYRICA [Suspect]
     Active Substance: PREGABALIN
     Indication: HYPOAESTHESIA
     Dosage: 25 MG, 1X/DAY
     Route: 048
     Dates: start: 20161008, end: 20161009
  5. OPALMON [Concomitant]
     Active Substance: LIMAPROST
     Dosage: UNK
  6. ATELEC [Concomitant]
     Active Substance: CILNIDIPINE
     Dosage: UNK

REACTIONS (2)
  - Fall [Recovered/Resolved]
  - Rhabdomyolysis [Recovered/Resolved]

NARRATIVE: CASE EVENT DATE: 20161010
